FAERS Safety Report 20484150 (Version 4)
Quarter: 2022Q3

REPORT INFORMATION
  Report Type: Report from Study
  Country: US (occurrence: US)
  Receive Date: 20220217
  Receipt Date: 20220711
  Transmission Date: 20221026
  Serious: No
  Sender: FDA-Public Use
  Company Number: US-NOVARTISTESTPH-NVSC2022US035806

PATIENT
  Sex: Male

DRUGS (1)
  1. COSENTYX [Suspect]
     Active Substance: SECUKINUMAB
     Indication: Psoriatic arthropathy
     Dosage: UNK
     Route: 058

REACTIONS (5)
  - COVID-19 [Unknown]
  - Musculoskeletal discomfort [Unknown]
  - Gastroenteritis viral [Unknown]
  - Arthralgia [Unknown]
  - Drug ineffective [Unknown]
